FAERS Safety Report 10239901 (Version 1)
Quarter: 2014Q2

REPORT INFORMATION
  Report Type: Report from Study
  Country: AU (occurrence: AU)
  Receive Date: 20140616
  Receipt Date: 20140616
  Transmission Date: 20141212
  Serious: Yes (Hospitalization)
  Sender: FDA-Public Use
  Company Number: AU-EXELIXIS-XL18414004405

PATIENT
  Age: 63 Year
  Sex: Male
  Weight: 73 kg

DRUGS (23)
  1. XL184 [Suspect]
     Indication: PROSTATE CANCER
     Dosage: 60 MG, QD
     Route: 048
     Dates: start: 20130830
  2. XL184 [Suspect]
     Dosage: 40 MG, QD
     Route: 048
     Dates: end: 20140522
  3. XL184 [Suspect]
     Indication: PROSTATE CANCER
     Dosage: 5 MG, BID
     Route: 048
     Dates: start: 20130830
  4. CRESTOR [Concomitant]
  5. NEXIUM [Concomitant]
  6. CARTIA [Concomitant]
  7. RAMIPRIL [Concomitant]
  8. SOTALOL [Concomitant]
  9. CITRICAL [Concomitant]
  10. FISH OIL [Concomitant]
  11. OXYCONTIN [Concomitant]
  12. PANADOL OSTEO [Concomitant]
  13. ENDONE [Concomitant]
  14. NAPROSYN [Concomitant]
  15. DENOSUMAB [Concomitant]
  16. GLYCERYL TRINITRATE [Concomitant]
  17. GOSERELIN [Concomitant]
  18. DIFFLAM [Concomitant]
  19. GAVISCON [Concomitant]
  20. PREDNISONE [Concomitant]
  21. MOTILIUM [Concomitant]
  22. CENTRUM [Concomitant]
  23. VALTREX [Concomitant]

REACTIONS (1)
  - Anaemia [Recovered/Resolved]
